FAERS Safety Report 9727633 (Version 1)
Quarter: 2013Q4

REPORT INFORMATION
  Report Type: Spontaneous
  Country: DK (occurrence: FR)
  Receive Date: 20131203
  Receipt Date: 20131203
  Transmission Date: 20140711
  Serious: Yes (Death)
  Sender: FDA-Public Use
  Company Number: FR-FRI-1000051817

PATIENT
  Age: 80 Year
  Sex: Female

DRUGS (4)
  1. CITALOPRAM [Suspect]
     Dosage: CITALOPRAM OVERDOSE NOS.
     Route: 048
     Dates: start: 20131015, end: 20131015
  2. PROPANOLOL [Suspect]
     Route: 048
  3. PROPANOLOL [Suspect]
     Dosage: PROPANOLOL OVERDOSE NOS.
     Route: 048
     Dates: start: 20131015, end: 20131015
  4. SIMVASTATIN [Concomitant]

REACTIONS (5)
  - Coma [Fatal]
  - Bradycardia [Fatal]
  - Antidepressant drug level increased [Fatal]
  - Cardioactive drug level increased [Fatal]
  - Intentional overdose [Fatal]
